FAERS Safety Report 19251970 (Version 3)
Quarter: 2022Q2

REPORT INFORMATION
  Report Type: Spontaneous
  Country: ES (occurrence: ES)
  Receive Date: 20210513
  Receipt Date: 20220511
  Transmission Date: 20220720
  Serious: Yes (Other)
  Sender: FDA-Public Use
  Company Number: ES-ROCHE-2815125

PATIENT
  Age: 39 Year
  Sex: Female

DRUGS (2)
  1. PACLITAXEL [Suspect]
     Active Substance: PACLITAXEL
     Indication: Breast cancer metastatic
     Dosage: 90 MG/M2, CYCLIC (FREQ:21 D;DAYS 1-8-15)
     Route: 065
     Dates: start: 201302, end: 201305
  2. BEVACIZUMAB [Suspect]
     Active Substance: BEVACIZUMAB
     Indication: Breast cancer metastatic
     Dosage: 10 MG/KG, CYCLIC (FREQUENCY:15 DAYS)
     Route: 065
     Dates: start: 201302, end: 201305

REACTIONS (1)
  - Cardiac failure [Recovered/Resolved]
